FAERS Safety Report 9096395 (Version 1)
Quarter: 2013Q1

REPORT INFORMATION
  Report Type: Spontaneous
  Country: US (occurrence: None)
  Receive Date: 20130124
  Receipt Date: 20130124
  Transmission Date: 20140127
  Serious: Yes (Death)
  Sender: FDA-Public Use
  Company Number: 2013SP000334

PATIENT
  Age: 31 Year
  Sex: Female

DRUGS (4)
  1. DILTIAZEM HYDROCHLORIDE [Suspect]
  2. CARVEDILOL [Suspect]
  3. AMLODIPINE [Suspect]
  4. TORSEMIDE [Suspect]

REACTIONS (2)
  - Toxicity to various agents [None]
  - Completed suicide [None]
